FAERS Safety Report 9330731 (Version 1)
Quarter: 2013Q2

REPORT INFORMATION
  Report Type: Spontaneous
  Country: US (occurrence: None)
  Receive Date: 20130604
  Receipt Date: 20130604
  Transmission Date: 20140414
  Serious: Yes (Hospitalization, Other)
  Sender: FDA-Public Use
  Company Number: None

PATIENT
  Age: 46 Year
  Sex: Female

DRUGS (2)
  1. DROSPIRENONE\ETHINYL ESTRADIOL [Suspect]
     Route: 048
     Dates: start: 20110501, end: 20110601
  2. DROSPIRENONE\ETHINYL ESTRADIOL [Suspect]
     Indication: CONTRACEPTION
     Route: 048
     Dates: start: 20110501, end: 20110601

REACTIONS (3)
  - Dysmenorrhoea [None]
  - Abnormal behaviour [None]
  - Product substitution issue [None]
